FAERS Safety Report 10745640 (Version 1)
Quarter: 2015Q1

REPORT INFORMATION
  Report Type: Spontaneous
  Country: US (occurrence: US)
  Receive Date: 20150128
  Receipt Date: 20150128
  Transmission Date: 20150721
  Serious: No
  Sender: FDA-Public Use
  Company Number: US-ENDO PHARMACEUTICALS INC.-MEPE20140002

PATIENT
  Sex: Male

DRUGS (1)
  1. MEPERIDINE HYDROCHLORIDE TABLETS 50MG [Suspect]
     Active Substance: MEPERIDINE HYDROCHLORIDE
     Indication: PAIN
     Route: 065

REACTIONS (1)
  - Withdrawal syndrome [Unknown]
